FAERS Safety Report 14307523 (Version 2)
Quarter: 2018Q1

REPORT INFORMATION
  Report Type: Spontaneous
  Country: US (occurrence: US)
  Receive Date: 20171220
  Receipt Date: 20180110
  Transmission Date: 20180509
  Serious: No
  Sender: FDA-Public Use
  Company Number: US-PFIZER INC-2017542377

PATIENT
  Age: 50 Year
  Sex: Male
  Weight: 102 kg

DRUGS (1)
  1. LYRICA [Suspect]
     Active Substance: PREGABALIN
     Indication: NEUROPATHY PERIPHERAL
     Dosage: 150 MG, 2X/DAY
     Route: 048
     Dates: start: 2012

REACTIONS (5)
  - Malaise [Not Recovered/Not Resolved]
  - Retching [Unknown]
  - Vomiting [Recovering/Resolving]
  - Insomnia [Unknown]
  - Intentional product use issue [Unknown]

NARRATIVE: CASE EVENT DATE: 201711
